FAERS Safety Report 5118839-6 (Version None)
Quarter: 2006Q3

REPORT INFORMATION
  Report Type: 
  Country: None (occurrence: None)
  Receive Date: 20060927
  Receipt Date: 20060912
  Transmission Date: 20061208
  Serious: Yes (Hospitalization)
  Sender: FDA-Public Use
  Company Number: 229535

PATIENT
  Age: 36 Year
  Sex: Male

DRUGS (1)
  1. RAPTIVA [Suspect]
     Indication: PSORIASIS
     Dates: start: 20050401, end: 20060811

REACTIONS (2)
  - CREUTZFELDT-JAKOB DISEASE [None]
  - WHITE BLOOD CELL COUNT INCREASED [None]
